FAERS Safety Report 8297743-9 (Version None)
Quarter: 2012Q2

REPORT INFORMATION
  Report Type: 
  Country: None (occurrence: None)
  Receive Date: 20120419
  Receipt Date: 20120416
  Transmission Date: 20120825
  Serious: Yes (Other)
  Sender: FDA-Public Use
  Company Number: BR-PFIZER INC-2011313802

PATIENT
  Sex: Female

DRUGS (1)
  1. FLUCONAZOLE [Suspect]
     Dosage: UNK
     Dates: start: 20111001

REACTIONS (5)
  - PRURITUS [None]
  - RASH MACULAR [None]
  - SWELLING FACE [None]
  - WOUND [None]
  - BLISTER [None]
